FAERS Safety Report 13995709 (Version 11)
Quarter: 2020Q2

REPORT INFORMATION
  Report Type: Spontaneous
  Country: US (occurrence: US)
  Receive Date: 20170921
  Receipt Date: 20200407
  Transmission Date: 20200713
  Serious: No
  Sender: FDA-Public Use
  Company Number: US-PFIZER INC-2017409502

PATIENT
  Age: 81 Year
  Sex: Male
  Weight: 113 kg

DRUGS (10)
  1. LYRICA [Suspect]
     Active Substance: PREGABALIN
     Indication: NEUROPATHY PERIPHERAL
     Dosage: 300 MG, 2X/DAY (FIVE YEARS AGO OR LONGER , 75MG FOUR IN THE MORNING AND FOUR IN THE EVENING)
     Route: 048
  2. LYRICA [Suspect]
     Active Substance: PREGABALIN
     Indication: PAIN
     Dosage: UNK
  3. IBUPROFEN. [Concomitant]
     Active Substance: IBUPROFEN
     Dosage: UNK
  4. LYRICA [Suspect]
     Active Substance: PREGABALIN
     Dosage: 225 MG, 2X/DAY (TAKING 75MG THREE IN THE MORNING AND THREE IN THE EVENING)
  5. LYRICA [Suspect]
     Active Substance: PREGABALIN
     Dosage: 300 MG, 2X/DAY(ONE IN THE MORNING AND ONE AT NIGHT)
     Route: 048
  6. LYRICA [Suspect]
     Active Substance: PREGABALIN
     Dosage: 300 MG, 1X/DAY (ONLY ONE PILL FOR ABOUT A MONTH)
  7. ALEVE [Concomitant]
     Active Substance: NAPROXEN SODIUM
     Dosage: UNK
  8. LYRICA [Suspect]
     Active Substance: PREGABALIN
     Dosage: 75 MG, 2X/DAY
  9. LYRICA [Suspect]
     Active Substance: PREGABALIN
     Dosage: UNK, 1X/DAY
  10. ASPIRIN. [Concomitant]
     Active Substance: ASPIRIN
     Indication: PAIN
     Dosage: 325 MG, DAILY (ONE EVERY MORNING)

REACTIONS (6)
  - Hypoacusis [Unknown]
  - Intentional product use issue [Unknown]
  - Burning sensation [Unknown]
  - Feeling abnormal [Unknown]
  - Ear disorder [Unknown]
  - Dysstasia [Unknown]

NARRATIVE: CASE EVENT DATE: 201709
